FAERS Safety Report 4947031-0 (Version None)
Quarter: 2006Q1

REPORT INFORMATION
  Report Type: 
  Country: None (occurrence: None)
  Receive Date: 20060317
  Receipt Date: 20060308
  Transmission Date: 20060701
  Serious: Yes (Other)
  Sender: FDA-Public Use
  Company Number: 2006UW03971

PATIENT
  Age: 59 Year
  Sex: Female
  Weight: 108 kg

DRUGS (5)
  1. SEROQUEL [Suspect]
     Indication: SCHIZOAFFECTIVE DISORDER
     Route: 048
     Dates: start: 20050101, end: 20060215
  2. SEROQUEL [Suspect]
     Indication: BIPOLAR DISORDER
     Route: 048
     Dates: start: 20050101, end: 20060215
  3. PROPRANOLOL [Concomitant]
  4. VICODIN [Concomitant]
  5. ENABLEX [Concomitant]

REACTIONS (7)
  - ABDOMINAL PAIN [None]
  - BLADDER PROLAPSE [None]
  - CONTUSION [None]
  - PANCREATIC CARCINOMA [None]
  - SOMNOLENCE [None]
  - UTERINE DISORDER [None]
  - WEIGHT DECREASED [None]
